FAERS Safety Report 9727181 (Version 1)
Quarter: 2013Q4

REPORT INFORMATION
  Report Type: Spontaneous
  Country: US (occurrence: US)
  Receive Date: 20131203
  Receipt Date: 20131203
  Transmission Date: 20140711
  Serious: No
  Sender: FDA-Public Use
  Company Number: US-BRISTOL-MYERS SQUIBB COMPANY-19500206

PATIENT
  Age: 68 Year
  Sex: Female
  Weight: 93.87 kg

DRUGS (5)
  1. KOMBIGLYZE XR [Suspect]
     Indication: TYPE 2 DIABETES MELLITUS
     Dosage: 1 DF : 5/1000MG?TABLETS ?90BILLS
  2. FENOFIBRATE [Concomitant]
  3. LOSARTAN [Concomitant]
     Dosage: 1 DF : 100MG/12.5MG
  4. CYMBALTA [Concomitant]
  5. GLIMEPIRIDE [Concomitant]

REACTIONS (1)
  - Drug ineffective [Unknown]
